FAERS Safety Report 4898762-2 (Version None)
Quarter: 2006Q1

REPORT INFORMATION
  Report Type: 
  Country: None (occurrence: None)
  Receive Date: 20060131
  Receipt Date: 20060103
  Transmission Date: 20060701
  Serious: Yes (Hospitalization)
  Sender: FDA-Public Use
  Company Number: 2006-00019

PATIENT
  Age: 70 Year
  Sex: Female
  Weight: 59.9 kg

DRUGS (8)
  1. VELCADE [Suspect]
     Indication: MULTIPLE MYELOMA
     Dosage: 1.30 MG, QD, INTRAVENOUS
     Route: 042
     Dates: start: 20050101
  2. TRISENOX [Suspect]
     Indication: MULTIPLE MYELOMA
     Dosage: 15.00 MG, QD, IV DRIP
     Route: 041
     Dates: start: 20050101
  3. ASCORBIC ACID [Suspect]
     Indication: MULTIPLE MYELOMA
     Dosage: 1.00 G, QD, INTRAVENOUS
     Route: 042
     Dates: start: 20050101
  4. LISINOPRIL [Concomitant]
  5. PLAVIX [Concomitant]
  6. ASPIRIN [Concomitant]
  7. VICODIN [Concomitant]
  8. VITAMIN NOS (VITAMIN NOS) [Concomitant]

REACTIONS (2)
  - PLEURAL EFFUSION [None]
  - PNEUMOTHORAX [None]
